FAERS Safety Report 15080963 (Version 2)
Quarter: 2019Q1

REPORT INFORMATION
  Report Type: Spontaneous
  Country: US (occurrence: US)
  Receive Date: 20180628
  Receipt Date: 20190130
  Transmission Date: 20190417
  Serious: No
  Sender: FDA-Public Use
  Company Number: US-GLENMARK PHARMACEUTICALS-2018GMK032456

PATIENT

DRUGS (4)
  1. CLOBETASOL [Concomitant]
     Active Substance: CLOBETASOL
     Indication: ECZEMA
     Dosage: UNK
     Route: 065
  2. MUPIROCIN. [Suspect]
     Active Substance: MUPIROCIN
     Indication: CAT SCRATCH DISEASE
  3. MUPIROCIN. [Suspect]
     Active Substance: MUPIROCIN
     Indication: HAEMORRHAGE
     Dosage: 1 DF, PRN
     Route: 061
     Dates: start: 201702, end: 20180305
  4. CLINDAMYCIN. [Concomitant]
     Active Substance: CLINDAMYCIN
     Indication: ACNE
     Dosage: UNK
     Route: 065

REACTIONS (1)
  - Drug ineffective for unapproved indication [Unknown]

NARRATIVE: CASE EVENT DATE: 201702
